FAERS Safety Report 7931862-9 (Version None)
Quarter: 2011Q4

REPORT INFORMATION
  Report Type: 
  Country: None (occurrence: None)
  Receive Date: 20111121
  Receipt Date: 20111117
  Transmission Date: 20120403
  Serious: Yes (Hospitalization)
  Sender: FDA-Public Use
  Company Number: US-BAYER-2011-111651

PATIENT
  Age: 72 Year
  Sex: Female

DRUGS (19)
  1. LANTUS [Suspect]
     Dosage: 70 IU, UNK
     Dates: start: 20110411, end: 20110511
  2. LANTUS [Suspect]
     Dosage: 85 IU, UNK
     Dates: start: 20110816
  3. NOVOLOG [Suspect]
     Indication: TYPE 2 DIABETES MELLITUS
     Dosage: 30 ?MOL, UNK
     Dates: end: 20110814
  4. SAXAGLIPTIN [Suspect]
     Dosage: UNK
     Dates: start: 20110713
  5. ORGANIC NITRATES [Concomitant]
  6. SAXAGLIPTIN [Suspect]
     Indication: TYPE 2 DIABETES MELLITUS
     Dosage: UNK
     Dates: start: 20101202, end: 20110625
  7. COUMADIN [Suspect]
  8. ALPHA BLOCKERS [Concomitant]
  9. STATIN [Concomitant]
  10. BETA BLOCKING AGENTS [Concomitant]
  11. CALCIUM ANTAGONIST [Concomitant]
  12. LANTUS [Suspect]
     Dosage: 65 ?MOL, UNK
     Dates: start: 20101223, end: 20110410
  13. NOVOLOG [Suspect]
     Dosage: 45 IU, UNK
     Dates: start: 20110815
  14. DIURETICS [Concomitant]
  15. ANGIOTENSIN II [Concomitant]
  16. LANTUS [Suspect]
     Indication: TYPE 2 DIABETES MELLITUS
     Dosage: 45 ?MOL, UNK
     Dates: end: 20101224
  17. ASPIRIN [Suspect]
  18. ADP ANTAGONIST [Concomitant]
  19. ONGLYZA [Suspect]
     Indication: TYPE 2 DIABETES MELLITUS
     Dosage: DAILY DOSE 2.5 MG
     Dates: start: 20110625, end: 20110712

REACTIONS (4)
  - ANAEMIA [None]
  - GASTROINTESTINAL HAEMORRHAGE [None]
  - DYSPNOEA [None]
  - FAECES DISCOLOURED [None]
